FAERS Safety Report 7243169-6 (Version None)
Quarter: 2011Q1

REPORT INFORMATION
  Report Type: 
  Country: None (occurrence: None)
  Receive Date: 20110118
  Receipt Date: 20100111
  Transmission Date: 20110831
  Serious: Yes (Other)
  Sender: FDA-Public Use
  Company Number: TMZP20110001

PATIENT
  Age: 78 Year
  Sex: Male

DRUGS (6)
  1. LORAZEPAM [Suspect]
     Indication: ANXIETY
  2. CLARITIN [Suspect]
     Indication: SINUSITIS
  3. METOPROLOL TARTRATE [Suspect]
     Indication: PRODUCT USED FOR UNKNOWN INDICATION
  4. NITRATES [Concomitant]
  5. TEMAZEPAM [Suspect]
     Indication: SOMNOLENCE
  6. OMEPRAZOLE [Suspect]
     Indication: PRODUCT USED FOR UNKNOWN INDICATION

REACTIONS (4)
  - VASCULAR GRAFT [None]
  - GOUT [None]
  - RHEUMATOID ARTHRITIS [None]
  - CEREBROVASCULAR ACCIDENT [None]
